FAERS Safety Report 6666823-3 (Version None)
Quarter: 2010Q2

REPORT INFORMATION
  Report Type: 
  Country: None (occurrence: None)
  Receive Date: 20100401
  Receipt Date: 20100401
  Transmission Date: 20101027
  Serious: No
  Sender: FDA-Public Use
  Company Number: None

PATIENT
  Age: 41 Year
  Sex: Male
  Weight: 95 kg

DRUGS (1)
  1. TAPENTADOL [Suspect]
     Indication: PAIN
     Dosage: 100 MG PRN
     Dates: start: 20100105, end: 20100210

REACTIONS (3)
  - DYSARTHRIA [None]
  - FEELING DRUNK [None]
  - SPEECH DISORDER [None]
